FAERS Safety Report 6973382-4 (Version None)
Quarter: 2010Q3

REPORT INFORMATION
  Report Type: 
  Country: None (occurrence: None)
  Receive Date: 20100909
  Receipt Date: 20100830
  Transmission Date: 20110219
  Serious: Yes (Other)
  Sender: FDA-Public Use
  Company Number: BR-PFIZER INC-2010108922

PATIENT
  Age: 47 Year
  Sex: Female

DRUGS (3)
  1. LIPITOR [Suspect]
     Dosage: 1X/DAY, 1 TABLET
     Route: 048
     Dates: start: 20100806
  2. CILOSTAZOL [Concomitant]
     Dosage: UNK
     Dates: start: 20100806
  3. SELOZOK [Concomitant]
     Dosage: UNK
     Dates: start: 20100806

REACTIONS (1)
  - PETECHIAE [None]
